FAERS Safety Report 6632219-3 (Version None)
Quarter: 2010Q1

REPORT INFORMATION
  Report Type: 
  Country: None (occurrence: None)
  Receive Date: 20100312
  Receipt Date: 20100303
  Transmission Date: 20100710
  Serious: Yes (Life-Threatening)
  Sender: FDA-Public Use
  Company Number: GXKR2010GB02597

PATIENT
  Age: 48 Year
  Sex: Female

DRUGS (3)
  1. FLUOXETINE [Suspect]
     Dosage: 20 MG, QD
     Route: 048
  2. COPAXONE [Suspect]
     Indication: MULTIPLE SCLEROSIS
     Dosage: 20 MG, QD
     Route: 058
  3. LANSOPRAZOLE [Concomitant]
     Route: 065

REACTIONS (1)
  - OESOPHAGEAL CARCINOMA [None]
